FAERS Safety Report 20443072 (Version 13)
Quarter: 2025Q1

REPORT INFORMATION
  Report Type: Other
  Country: GB (occurrence: GB)
  Receive Date: 20220208
  Receipt Date: 20250122
  Transmission Date: 20250409
  Serious: Yes (Death, Life-Threatening, Hospitalization, Disabling, Other)
  Sender: STRIDES
  Company Number: None

PATIENT
  Age: 31 Year
  Sex: Female
  Weight: 64 kg

DRUGS (301)
  1. OMEPRAZOLE [Interacting]
     Active Substance: OMEPRAZOLE
     Indication: Dyspepsia
     Route: 048
     Dates: start: 20110525
  2. OMEPRAZOLE [Interacting]
     Active Substance: OMEPRAZOLE
     Route: 048
  3. OMEPRAZOLE [Interacting]
     Active Substance: OMEPRAZOLE
     Route: 065
  4. OMEPRAZOLE [Interacting]
     Active Substance: OMEPRAZOLE
     Route: 065
  5. OMEPRAZOLE [Interacting]
     Active Substance: OMEPRAZOLE
     Route: 048
  6. OMEPRAZOLE [Interacting]
     Active Substance: OMEPRAZOLE
     Route: 065
  7. OMEPRAZOLE [Interacting]
     Active Substance: OMEPRAZOLE
     Route: 048
  8. OMEPRAZOLE [Interacting]
     Active Substance: OMEPRAZOLE
     Route: 048
     Dates: start: 20110525
  9. TRAMADOL [Interacting]
     Active Substance: TRAMADOL
     Indication: Back pain
     Route: 048
  10. TRAMADOL [Interacting]
     Active Substance: TRAMADOL
     Indication: Neck pain
     Route: 048
  11. TRAMADOL [Interacting]
     Active Substance: TRAMADOL
     Indication: Analgesic therapy
     Route: 048
  12. TRAMADOL [Interacting]
     Active Substance: TRAMADOL
     Indication: Oculogyric crisis
     Route: 044
  13. TRAMADOL [Interacting]
     Active Substance: TRAMADOL
     Indication: Muscle spasms
     Route: 048
  14. TRAMADOL [Interacting]
     Active Substance: TRAMADOL
     Route: 065
  15. TRAMADOL [Interacting]
     Active Substance: TRAMADOL
     Route: 065
  16. TRAMADOL [Interacting]
     Active Substance: TRAMADOL
     Route: 048
  17. TRAMADOL [Interacting]
     Active Substance: TRAMADOL
     Route: 065
  18. TRAMADOL [Interacting]
     Active Substance: TRAMADOL
     Route: 048
  19. TRAMADOL [Interacting]
     Active Substance: TRAMADOL
     Route: 065
  20. TRAMADOL [Interacting]
     Active Substance: TRAMADOL
     Route: 065
  21. TRAMADOL [Interacting]
     Active Substance: TRAMADOL
     Route: 048
  22. TRAMADOL [Interacting]
     Active Substance: TRAMADOL
     Route: 048
  23. TRAMADOL [Interacting]
     Active Substance: TRAMADOL
     Route: 065
  24. TRAMADOL [Interacting]
     Active Substance: TRAMADOL
     Route: 048
  25. TRAMADOL [Interacting]
     Active Substance: TRAMADOL
     Route: 048
  26. TRAMADOL [Interacting]
     Active Substance: TRAMADOL
     Route: 048
  27. TRAMADOL [Interacting]
     Active Substance: TRAMADOL
     Route: 065
  28. TRAMADOL [Interacting]
     Active Substance: TRAMADOL
     Route: 048
  29. TRAMADOL [Interacting]
     Active Substance: TRAMADOL
     Route: 048
  30. TRAMADOL [Interacting]
     Active Substance: TRAMADOL
     Route: 048
  31. TRAMADOL [Interacting]
     Active Substance: TRAMADOL
     Route: 048
     Dates: start: 20081201, end: 20101210
  32. TRAMADOL [Interacting]
     Active Substance: TRAMADOL
     Route: 065
  33. TRAMADOL [Interacting]
     Active Substance: TRAMADOL
     Route: 065
  34. TRAMADOL [Interacting]
     Active Substance: TRAMADOL
     Route: 065
  35. TRAMADOL [Interacting]
     Active Substance: TRAMADOL
     Route: 065
  36. TRAMADOL [Interacting]
     Active Substance: TRAMADOL
     Route: 065
  37. TRAMADOL [Interacting]
     Active Substance: TRAMADOL
     Route: 065
  38. TRAMADOL [Interacting]
     Active Substance: TRAMADOL
     Route: 065
  39. TRAMADOL [Interacting]
     Active Substance: TRAMADOL
     Route: 065
     Dates: start: 2008, end: 2009
  40. TRAMADOL [Interacting]
     Active Substance: TRAMADOL
     Route: 065
     Dates: start: 20110725
  41. TRAMADOL [Interacting]
     Active Substance: TRAMADOL
     Route: 048
  42. TRAMADOL [Interacting]
     Active Substance: TRAMADOL
     Route: 065
     Dates: start: 20110725
  43. TRAMADOL [Interacting]
     Active Substance: TRAMADOL
     Route: 065
     Dates: start: 20081201, end: 20101210
  44. TRAMADOL [Interacting]
     Active Substance: TRAMADOL
     Route: 048
     Dates: start: 20080722
  45. TRAMADOL [Interacting]
     Active Substance: TRAMADOL
     Route: 044
  46. TRAMADOL [Interacting]
     Active Substance: TRAMADOL
     Route: 044
     Dates: start: 1995, end: 1996
  47. TRAMADOL [Interacting]
     Active Substance: TRAMADOL
     Route: 048
  48. TRAMADOL [Interacting]
     Active Substance: TRAMADOL
     Route: 065
  49. TRAMADOL [Interacting]
     Active Substance: TRAMADOL
     Route: 065
  50. TRAMADOL [Interacting]
     Active Substance: TRAMADOL
     Route: 048
     Dates: start: 20110725
  51. DIAZEPAM [Interacting]
     Active Substance: DIAZEPAM
     Indication: Serotonin syndrome
     Route: 048
  52. DIAZEPAM [Interacting]
     Active Substance: DIAZEPAM
     Indication: Muscle spasms
     Route: 048
  53. DIAZEPAM [Interacting]
     Active Substance: DIAZEPAM
     Indication: Depression
     Route: 065
  54. DIAZEPAM [Interacting]
     Active Substance: DIAZEPAM
     Indication: Analgesic therapy
     Route: 048
  55. DIAZEPAM [Interacting]
     Active Substance: DIAZEPAM
     Route: 048
  56. DIAZEPAM [Interacting]
     Active Substance: DIAZEPAM
     Route: 048
  57. DIAZEPAM [Interacting]
     Active Substance: DIAZEPAM
     Route: 048
     Dates: start: 20110725
  58. DIAZEPAM [Interacting]
     Active Substance: DIAZEPAM
     Route: 048
  59. DIAZEPAM [Interacting]
     Active Substance: DIAZEPAM
     Route: 065
  60. DIAZEPAM [Interacting]
     Active Substance: DIAZEPAM
     Route: 048
  61. DIAZEPAM [Interacting]
     Active Substance: DIAZEPAM
     Route: 065
  62. DIAZEPAM [Interacting]
     Active Substance: DIAZEPAM
     Route: 048
  63. DIAZEPAM [Interacting]
     Active Substance: DIAZEPAM
     Route: 048
  64. DIAZEPAM [Interacting]
     Active Substance: DIAZEPAM
     Route: 048
  65. DIAZEPAM [Interacting]
     Active Substance: DIAZEPAM
     Route: 065
  66. DIAZEPAM [Interacting]
     Active Substance: DIAZEPAM
     Route: 065
  67. DIAZEPAM [Interacting]
     Active Substance: DIAZEPAM
     Route: 048
     Dates: start: 20110725
  68. DIAZEPAM [Interacting]
     Active Substance: DIAZEPAM
     Route: 048
     Dates: start: 20110725
  69. DIAZEPAM [Interacting]
     Active Substance: DIAZEPAM
     Route: 048
     Dates: start: 20110725
  70. DIAZEPAM [Interacting]
     Active Substance: DIAZEPAM
     Route: 065
  71. DIAZEPAM [Interacting]
     Active Substance: DIAZEPAM
     Route: 048
     Dates: start: 20110725
  72. DIAZEPAM [Interacting]
     Active Substance: DIAZEPAM
     Route: 048
     Dates: start: 20110725, end: 20110725
  73. DIAZEPAM [Interacting]
     Active Substance: DIAZEPAM
     Route: 065
     Dates: start: 20110725
  74. PROCYCLIDINE [Interacting]
     Active Substance: PROCYCLIDINE
     Indication: Extrapyramidal disorder
     Route: 048
  75. PROCYCLIDINE [Interacting]
     Active Substance: PROCYCLIDINE
     Indication: Oculogyric crisis
     Route: 065
  76. PROCYCLIDINE [Interacting]
     Active Substance: PROCYCLIDINE
     Indication: Psychotic symptom
     Route: 048
  77. PROCYCLIDINE [Interacting]
     Active Substance: PROCYCLIDINE
     Route: 048
     Dates: start: 20110503, end: 20110510
  78. PROCYCLIDINE [Interacting]
     Active Substance: PROCYCLIDINE
     Route: 048
     Dates: start: 1995, end: 1995
  79. PROCYCLIDINE [Interacting]
     Active Substance: PROCYCLIDINE
     Route: 048
  80. PROCYCLIDINE [Interacting]
     Active Substance: PROCYCLIDINE
     Route: 048
     Dates: start: 20110324, end: 20110506
  81. PROCYCLIDINE [Interacting]
     Active Substance: PROCYCLIDINE
     Route: 048
     Dates: start: 1995, end: 1996
  82. PROCYCLIDINE [Interacting]
     Active Substance: PROCYCLIDINE
     Route: 065
  83. PROCYCLIDINE [Interacting]
     Active Substance: PROCYCLIDINE
     Route: 048
  84. PROCYCLIDINE [Interacting]
     Active Substance: PROCYCLIDINE
     Route: 048
  85. PROCYCLIDINE [Interacting]
     Active Substance: PROCYCLIDINE
     Route: 065
     Dates: start: 20110503, end: 20110510
  86. PROCYCLIDINE [Interacting]
     Active Substance: PROCYCLIDINE
     Route: 048
  87. PROCYCLIDINE [Interacting]
     Active Substance: PROCYCLIDINE
     Route: 048
  88. PROCYCLIDINE [Interacting]
     Active Substance: PROCYCLIDINE
     Route: 065
  89. PROCYCLIDINE [Interacting]
     Active Substance: PROCYCLIDINE
     Route: 048
     Dates: start: 20110503, end: 20110510
  90. PROCYCLIDINE [Interacting]
     Active Substance: PROCYCLIDINE
     Route: 065
     Dates: start: 20110415
  91. PROCYCLIDINE [Interacting]
     Active Substance: PROCYCLIDINE
     Route: 065
  92. PROCYCLIDINE [Interacting]
     Active Substance: PROCYCLIDINE
     Route: 048
     Dates: start: 20110503, end: 20110510
  93. PROCYCLIDINE [Interacting]
     Active Substance: PROCYCLIDINE
     Route: 065
     Dates: start: 20110415
  94. PROCYCLIDINE [Interacting]
     Active Substance: PROCYCLIDINE
     Route: 048
     Dates: start: 1995, end: 1995
  95. DOMPERIDONE [Interacting]
     Active Substance: DOMPERIDONE
     Indication: Product used for unknown indication
     Route: 048
  96. DOMPERIDONE [Interacting]
     Active Substance: DOMPERIDONE
     Route: 048
  97. DOMPERIDONE [Interacting]
     Active Substance: DOMPERIDONE
     Route: 048
  98. DOMPERIDONE [Interacting]
     Active Substance: DOMPERIDONE
     Route: 065
     Dates: start: 20100923, end: 20101108
  99. DOMPERIDONE [Interacting]
     Active Substance: DOMPERIDONE
     Route: 048
  100. DOMPERIDONE [Interacting]
     Active Substance: DOMPERIDONE
     Route: 048
  101. DOMPERIDONE [Interacting]
     Active Substance: DOMPERIDONE
     Route: 065
  102. DOMPERIDONE [Interacting]
     Active Substance: DOMPERIDONE
     Route: 065
  103. CLONAZEPAM [Interacting]
     Active Substance: CLONAZEPAM
     Indication: Sedation
     Route: 048
  104. CLONAZEPAM [Interacting]
     Active Substance: CLONAZEPAM
     Route: 048
  105. CLONAZEPAM [Interacting]
     Active Substance: CLONAZEPAM
     Route: 048
  106. CLONAZEPAM [Interacting]
     Active Substance: CLONAZEPAM
     Route: 065
     Dates: start: 20110224, end: 20110410
  107. CLONAZEPAM [Interacting]
     Active Substance: CLONAZEPAM
     Route: 048
  108. CLONAZEPAM [Interacting]
     Active Substance: CLONAZEPAM
     Route: 048
  109. CLONAZEPAM [Interacting]
     Active Substance: CLONAZEPAM
     Route: 048
  110. AMITRIPTYLINE [Interacting]
     Active Substance: AMITRIPTYLINE
     Indication: Muscle spasms
     Route: 065
  111. AMITRIPTYLINE [Interacting]
     Active Substance: AMITRIPTYLINE
     Indication: Serotonin syndrome
     Route: 065
  112. AMITRIPTYLINE [Interacting]
     Active Substance: AMITRIPTYLINE
     Indication: Neuralgia
     Route: 065
  113. AMITRIPTYLINE [Interacting]
     Active Substance: AMITRIPTYLINE
     Indication: Drug withdrawal syndrome
     Route: 065
  114. AMITRIPTYLINE [Interacting]
     Active Substance: AMITRIPTYLINE
     Indication: Sedation
     Route: 065
  115. AMITRIPTYLINE [Interacting]
     Active Substance: AMITRIPTYLINE
     Route: 065
  116. AMITRIPTYLINE [Interacting]
     Active Substance: AMITRIPTYLINE
     Route: 065
  117. AMITRIPTYLINE [Interacting]
     Active Substance: AMITRIPTYLINE
     Route: 065
  118. AMITRIPTYLINE [Interacting]
     Active Substance: AMITRIPTYLINE
     Route: 048
  119. AMITRIPTYLINE [Interacting]
     Active Substance: AMITRIPTYLINE
     Route: 048
  120. AMITRIPTYLINE [Interacting]
     Active Substance: AMITRIPTYLINE
     Route: 065
  121. AMITRIPTYLINE [Interacting]
     Active Substance: AMITRIPTYLINE
     Route: 065
  122. AMITRIPTYLINE [Interacting]
     Active Substance: AMITRIPTYLINE
     Route: 065
  123. AMITRIPTYLINE [Interacting]
     Active Substance: AMITRIPTYLINE
     Route: 048
  124. AMITRIPTYLINE [Interacting]
     Active Substance: AMITRIPTYLINE
     Route: 048
     Dates: start: 20110810
  125. AMITRIPTYLINE [Interacting]
     Active Substance: AMITRIPTYLINE
     Route: 048
  126. AMITRIPTYLINE [Interacting]
     Active Substance: AMITRIPTYLINE
     Route: 048
  127. AMITRIPTYLINE [Interacting]
     Active Substance: AMITRIPTYLINE
     Route: 065
  128. AMITRIPTYLINE [Interacting]
     Active Substance: AMITRIPTYLINE
     Route: 048
  129. AMITRIPTYLINE [Interacting]
     Active Substance: AMITRIPTYLINE
     Route: 048
  130. AMITRIPTYLINE [Interacting]
     Active Substance: AMITRIPTYLINE
     Route: 065
  131. LORAZEPAM [Interacting]
     Active Substance: LORAZEPAM
     Indication: Sedation
     Route: 048
  132. LORAZEPAM [Interacting]
     Active Substance: LORAZEPAM
     Indication: Muscle spasms
     Route: 048
  133. LORAZEPAM [Interacting]
     Active Substance: LORAZEPAM
     Route: 048
  134. LORAZEPAM [Interacting]
     Active Substance: LORAZEPAM
     Route: 048
  135. LORAZEPAM [Interacting]
     Active Substance: LORAZEPAM
     Route: 048
  136. LORAZEPAM [Interacting]
     Active Substance: LORAZEPAM
     Route: 048
  137. LORAZEPAM [Interacting]
     Active Substance: LORAZEPAM
     Route: 048
  138. LORAZEPAM [Interacting]
     Active Substance: LORAZEPAM
     Route: 048
  139. LORAZEPAM [Interacting]
     Active Substance: LORAZEPAM
     Route: 048
  140. LORAZEPAM [Interacting]
     Active Substance: LORAZEPAM
     Route: 048
  141. LORAZEPAM [Interacting]
     Active Substance: LORAZEPAM
     Route: 048
  142. LORAZEPAM [Interacting]
     Active Substance: LORAZEPAM
     Route: 048
  143. LORAZEPAM [Interacting]
     Active Substance: LORAZEPAM
     Route: 048
  144. LORAZEPAM [Interacting]
     Active Substance: LORAZEPAM
     Route: 048
  145. LORAZEPAM [Interacting]
     Active Substance: LORAZEPAM
     Route: 048
     Dates: start: 20110523, end: 20110627
  146. LORAZEPAM [Interacting]
     Active Substance: LORAZEPAM
     Route: 048
  147. LORAZEPAM [Interacting]
     Active Substance: LORAZEPAM
     Route: 048
  148. LORAZEPAM [Interacting]
     Active Substance: LORAZEPAM
     Route: 048
  149. LORAZEPAM [Interacting]
     Active Substance: LORAZEPAM
     Route: 048
  150. LORAZEPAM [Interacting]
     Active Substance: LORAZEPAM
     Route: 065
  151. LORAZEPAM [Interacting]
     Active Substance: LORAZEPAM
     Route: 048
  152. LORAZEPAM [Interacting]
     Active Substance: LORAZEPAM
     Route: 048
  153. LORAZEPAM [Interacting]
     Active Substance: LORAZEPAM
     Route: 048
  154. LORAZEPAM [Interacting]
     Active Substance: LORAZEPAM
     Route: 048
  155. LORAZEPAM [Interacting]
     Active Substance: LORAZEPAM
     Route: 048
  156. LORAZEPAM [Interacting]
     Active Substance: LORAZEPAM
     Route: 048
     Dates: start: 20110725
  157. LORAZEPAM [Interacting]
     Active Substance: LORAZEPAM
     Route: 048
  158. LORAZEPAM [Interacting]
     Active Substance: LORAZEPAM
     Route: 048
     Dates: start: 20110224, end: 20110410
  159. LORAZEPAM [Interacting]
     Active Substance: LORAZEPAM
     Route: 065
  160. LORAZEPAM [Interacting]
     Active Substance: LORAZEPAM
     Route: 065
  161. LORAZEPAM [Interacting]
     Active Substance: LORAZEPAM
     Route: 065
  162. LORAZEPAM [Interacting]
     Active Substance: LORAZEPAM
     Route: 065
  163. LORAZEPAM [Interacting]
     Active Substance: LORAZEPAM
     Route: 065
     Dates: start: 20110523, end: 20110627
  164. LORAZEPAM [Interacting]
     Active Substance: LORAZEPAM
     Route: 048
  165. LORAZEPAM [Interacting]
     Active Substance: LORAZEPAM
     Route: 048
  166. LORAZEPAM [Interacting]
     Active Substance: LORAZEPAM
     Route: 048
  167. LORAZEPAM [Interacting]
     Active Substance: LORAZEPAM
     Route: 048
  168. LORAZEPAM [Interacting]
     Active Substance: LORAZEPAM
     Route: 048
     Dates: start: 20110224, end: 20110410
  169. LORAZEPAM [Interacting]
     Active Substance: LORAZEPAM
     Route: 048
  170. LORAZEPAM [Interacting]
     Active Substance: LORAZEPAM
     Route: 048
  171. LORAZEPAM [Interacting]
     Active Substance: LORAZEPAM
     Route: 065
     Dates: start: 20110523, end: 20110627
  172. LORAZEPAM [Interacting]
     Active Substance: LORAZEPAM
     Route: 048
     Dates: start: 20110202, end: 20110410
  173. LORAZEPAM [Interacting]
     Active Substance: LORAZEPAM
     Route: 048
     Dates: start: 20110202, end: 20110410
  174. MIRTAZAPINE [Interacting]
     Active Substance: MIRTAZAPINE
     Indication: Depression
     Route: 048
  175. MIRTAZAPINE [Interacting]
     Active Substance: MIRTAZAPINE
     Indication: Psychotic disorder
     Route: 048
  176. MIRTAZAPINE [Interacting]
     Active Substance: MIRTAZAPINE
     Route: 065
     Dates: start: 20110224, end: 20110506
  177. MIRTAZAPINE [Interacting]
     Active Substance: MIRTAZAPINE
     Route: 048
     Dates: start: 20101007, end: 20101012
  178. MIRTAZAPINE [Interacting]
     Active Substance: MIRTAZAPINE
     Route: 065
  179. MIRTAZAPINE [Interacting]
     Active Substance: MIRTAZAPINE
     Route: 065
     Dates: start: 20101007, end: 20101012
  180. MIRTAZAPINE [Interacting]
     Active Substance: MIRTAZAPINE
     Route: 065
  181. MIRTAZAPINE [Interacting]
     Active Substance: MIRTAZAPINE
     Route: 048
  182. MIRTAZAPINE [Interacting]
     Active Substance: MIRTAZAPINE
     Route: 048
  183. MIRTAZAPINE [Interacting]
     Active Substance: MIRTAZAPINE
     Route: 065
  184. MIRTAZAPINE [Interacting]
     Active Substance: MIRTAZAPINE
     Route: 048
  185. MIRTAZAPINE [Interacting]
     Active Substance: MIRTAZAPINE
     Route: 048
  186. MIRTAZAPINE [Interacting]
     Active Substance: MIRTAZAPINE
     Route: 065
     Dates: start: 20100923, end: 20101108
  187. MIRTAZAPINE [Interacting]
     Active Substance: MIRTAZAPINE
     Route: 065
  188. MIRTAZAPINE [Interacting]
     Active Substance: MIRTAZAPINE
     Route: 065
  189. MIRTAZAPINE [Interacting]
     Active Substance: MIRTAZAPINE
     Route: 065
  190. MIRTAZAPINE [Interacting]
     Active Substance: MIRTAZAPINE
     Route: 048
     Dates: start: 20110224, end: 20110506
  191. MIRTAZAPINE [Interacting]
     Active Substance: MIRTAZAPINE
     Route: 048
  192. MIRTAZAPINE [Interacting]
     Active Substance: MIRTAZAPINE
     Route: 048
  193. MIRTAZAPINE [Interacting]
     Active Substance: MIRTAZAPINE
     Route: 048
  194. MIRTAZAPINE [Interacting]
     Active Substance: MIRTAZAPINE
     Route: 048
  195. MIRTAZAPINE [Interacting]
     Active Substance: MIRTAZAPINE
     Route: 065
  196. MIRTAZAPINE [Interacting]
     Active Substance: MIRTAZAPINE
     Route: 048
  197. MIRTAZAPINE [Interacting]
     Active Substance: MIRTAZAPINE
     Route: 065
     Dates: start: 20100923, end: 20101108
  198. QUETIAPINE [Interacting]
     Active Substance: QUETIAPINE
     Indication: Psychotic disorder
     Route: 048
  199. QUETIAPINE [Interacting]
     Active Substance: QUETIAPINE
     Indication: Stress
     Route: 048
  200. QUETIAPINE [Interacting]
     Active Substance: QUETIAPINE
     Route: 065
  201. QUETIAPINE [Interacting]
     Active Substance: QUETIAPINE
     Route: 048
  202. QUETIAPINE [Interacting]
     Active Substance: QUETIAPINE
     Route: 048
     Dates: start: 20110224, end: 20110506
  203. QUETIAPINE [Interacting]
     Active Substance: QUETIAPINE
     Route: 048
  204. QUETIAPINE [Interacting]
     Active Substance: QUETIAPINE
     Route: 048
  205. QUETIAPINE [Interacting]
     Active Substance: QUETIAPINE
     Route: 048
     Dates: start: 19990801, end: 20110706
  206. QUETIAPINE [Interacting]
     Active Substance: QUETIAPINE
     Route: 048
  207. QUETIAPINE [Interacting]
     Active Substance: QUETIAPINE
     Route: 048
  208. QUETIAPINE [Interacting]
     Active Substance: QUETIAPINE
     Route: 048
  209. QUETIAPINE [Interacting]
     Active Substance: QUETIAPINE
     Route: 065
  210. PAROXETINE HYDROCHLORIDE [Interacting]
     Active Substance: PAROXETINE HYDROCHLORIDE
     Indication: Depression
     Route: 048
  211. PAROXETINE HYDROCHLORIDE [Interacting]
     Active Substance: PAROXETINE HYDROCHLORIDE
     Route: 048
  212. PAROXETINE HYDROCHLORIDE [Interacting]
     Active Substance: PAROXETINE HYDROCHLORIDE
     Route: 048
  213. PAROXETINE HYDROCHLORIDE [Interacting]
     Active Substance: PAROXETINE HYDROCHLORIDE
     Route: 048
  214. PAROXETINE HYDROCHLORIDE [Interacting]
     Active Substance: PAROXETINE HYDROCHLORIDE
     Route: 048
  215. PAROXETINE HYDROCHLORIDE [Interacting]
     Active Substance: PAROXETINE HYDROCHLORIDE
     Route: 048
  216. PAROXETINE HYDROCHLORIDE [Interacting]
     Active Substance: PAROXETINE HYDROCHLORIDE
     Route: 048
  217. PAROXETINE HYDROCHLORIDE [Interacting]
     Active Substance: PAROXETINE HYDROCHLORIDE
     Route: 048
  218. PAROXETINE HYDROCHLORIDE [Interacting]
     Active Substance: PAROXETINE HYDROCHLORIDE
     Route: 048
     Dates: start: 2011, end: 20110706
  219. PAROXETINE HYDROCHLORIDE [Interacting]
     Active Substance: PAROXETINE HYDROCHLORIDE
     Route: 048
     Dates: start: 201105, end: 20110706
  220. PAROXETINE HYDROCHLORIDE [Interacting]
     Active Substance: PAROXETINE HYDROCHLORIDE
     Route: 048
  221. PAROXETINE HYDROCHLORIDE [Interacting]
     Active Substance: PAROXETINE HYDROCHLORIDE
     Route: 048
  222. PAROXETINE HYDROCHLORIDE [Interacting]
     Active Substance: PAROXETINE HYDROCHLORIDE
     Route: 048
  223. PAROXETINE HYDROCHLORIDE [Interacting]
     Active Substance: PAROXETINE HYDROCHLORIDE
     Route: 048
  224. PAROXETINE HYDROCHLORIDE [Interacting]
     Active Substance: PAROXETINE HYDROCHLORIDE
     Route: 048
     Dates: start: 19990801, end: 201105
  225. PAROXETINE HYDROCHLORIDE [Interacting]
     Active Substance: PAROXETINE HYDROCHLORIDE
     Route: 048
  226. PAROXETINE HYDROCHLORIDE [Interacting]
     Active Substance: PAROXETINE HYDROCHLORIDE
     Route: 048
  227. PAROXETINE HYDROCHLORIDE [Interacting]
     Active Substance: PAROXETINE HYDROCHLORIDE
     Route: 065
  228. PAROXETINE HYDROCHLORIDE [Interacting]
     Active Substance: PAROXETINE HYDROCHLORIDE
     Route: 065
  229. PAROXETINE HYDROCHLORIDE [Interacting]
     Active Substance: PAROXETINE HYDROCHLORIDE
     Route: 048
     Dates: start: 201012
  230. PAROXETINE HYDROCHLORIDE [Interacting]
     Active Substance: PAROXETINE HYDROCHLORIDE
     Route: 065
  231. PAROXETINE HYDROCHLORIDE [Interacting]
     Active Substance: PAROXETINE HYDROCHLORIDE
     Route: 048
  232. PAROXETINE HYDROCHLORIDE [Interacting]
     Active Substance: PAROXETINE HYDROCHLORIDE
     Route: 048
     Dates: start: 1997
  233. PAROXETINE HYDROCHLORIDE [Interacting]
     Active Substance: PAROXETINE HYDROCHLORIDE
     Route: 048
  234. PAROXETINE HYDROCHLORIDE [Interacting]
     Active Substance: PAROXETINE HYDROCHLORIDE
     Route: 048
  235. PAROXETINE HYDROCHLORIDE [Interacting]
     Active Substance: PAROXETINE HYDROCHLORIDE
     Route: 048
     Dates: start: 19990801, end: 201105
  236. PAROXETINE HYDROCHLORIDE [Interacting]
     Active Substance: PAROXETINE HYDROCHLORIDE
     Route: 048
     Dates: start: 19990801, end: 201105
  237. PAROXETINE HYDROCHLORIDE [Interacting]
     Active Substance: PAROXETINE HYDROCHLORIDE
     Route: 048
  238. PAROXETINE HYDROCHLORIDE [Interacting]
     Active Substance: PAROXETINE HYDROCHLORIDE
     Route: 048
     Dates: start: 1997, end: 201105
  239. PAROXETINE HYDROCHLORIDE [Interacting]
     Active Substance: PAROXETINE HYDROCHLORIDE
     Route: 048
     Dates: start: 200812, end: 20101210
  240. PAROXETINE HYDROCHLORIDE [Interacting]
     Active Substance: PAROXETINE HYDROCHLORIDE
     Route: 065
     Dates: start: 201105, end: 20110706
  241. PAROXETINE HYDROCHLORIDE [Interacting]
     Active Substance: PAROXETINE HYDROCHLORIDE
     Route: 065
     Dates: start: 1999
  242. PAROXETINE HYDROCHLORIDE [Interacting]
     Active Substance: PAROXETINE HYDROCHLORIDE
     Route: 065
     Dates: start: 2011, end: 201105
  243. PAROXETINE HYDROCHLORIDE [Interacting]
     Active Substance: PAROXETINE HYDROCHLORIDE
     Route: 048
     Dates: start: 1999, end: 201105
  244. CODEINE [Interacting]
     Active Substance: CODEINE
     Indication: Analgesic therapy
     Route: 048
  245. CODEINE [Interacting]
     Active Substance: CODEINE
     Indication: Serotonin syndrome
     Route: 048
     Dates: start: 20110224, end: 20110410
  246. CODEINE [Interacting]
     Active Substance: CODEINE
     Route: 048
  247. CODEINE [Interacting]
     Active Substance: CODEINE
     Route: 048
  248. CODEINE [Interacting]
     Active Substance: CODEINE
     Route: 048
  249. CODEINE [Interacting]
     Active Substance: CODEINE
     Route: 048
  250. CODEINE [Interacting]
     Active Substance: CODEINE
     Route: 048
  251. CODEINE [Interacting]
     Active Substance: CODEINE
     Route: 048
  252. CODEINE [Interacting]
     Active Substance: CODEINE
     Route: 048
  253. CODEINE [Interacting]
     Active Substance: CODEINE
     Route: 048
  254. CODEINE [Interacting]
     Active Substance: CODEINE
     Route: 048
  255. CODEINE [Interacting]
     Active Substance: CODEINE
     Route: 048
  256. CODEINE [Interacting]
     Active Substance: CODEINE
     Route: 065
  257. CODEINE [Interacting]
     Active Substance: CODEINE
     Route: 065
  258. CODEINE [Interacting]
     Active Substance: CODEINE
     Route: 065
  259. CODEINE [Interacting]
     Active Substance: CODEINE
     Route: 048
  260. CODEINE [Interacting]
     Active Substance: CODEINE
     Route: 065
  261. CODEINE [Interacting]
     Active Substance: CODEINE
     Route: 065
  262. CODEINE [Interacting]
     Active Substance: CODEINE
     Route: 048
  263. CODEINE [Interacting]
     Active Substance: CODEINE
     Route: 065
  264. CODEINE [Interacting]
     Active Substance: CODEINE
     Route: 048
  265. CODEINE [Interacting]
     Active Substance: CODEINE
     Route: 048
  266. CODEINE [Interacting]
     Active Substance: CODEINE
     Route: 048
  267. CODEINE [Interacting]
     Active Substance: CODEINE
     Route: 048
     Dates: start: 2002, end: 2002
  268. CODEINE [Interacting]
     Active Substance: CODEINE
     Route: 048
  269. CODEINE [Interacting]
     Active Substance: CODEINE
     Route: 048
     Dates: start: 20110615, end: 20110723
  270. PAROXETINE [Interacting]
     Active Substance: PAROXETINE
     Indication: Depression
     Route: 048
  271. PAROXETINE [Interacting]
     Active Substance: PAROXETINE
     Indication: Post-traumatic stress disorder
     Route: 048
  272. PAROXETINE [Interacting]
     Active Substance: PAROXETINE
     Route: 048
  273. PAROXETINE [Interacting]
     Active Substance: PAROXETINE
     Route: 048
  274. PAROXETINE [Interacting]
     Active Substance: PAROXETINE
     Route: 065
  275. PAROXETINE [Interacting]
     Active Substance: PAROXETINE
     Route: 048
  276. PAROXETINE [Interacting]
     Active Substance: PAROXETINE
     Route: 048
  277. PAROXETINE [Interacting]
     Active Substance: PAROXETINE
     Route: 048
  278. PAROXETINE [Interacting]
     Active Substance: PAROXETINE
     Route: 048
  279. PAROXETINE [Interacting]
     Active Substance: PAROXETINE
     Route: 048
  280. PAROXETINE [Interacting]
     Active Substance: PAROXETINE
     Route: 048
     Dates: start: 1997, end: 201105
  281. PAROXETINE [Interacting]
     Active Substance: PAROXETINE
     Route: 048
     Dates: start: 19990801, end: 20110706
  282. PAROXETINE [Interacting]
     Active Substance: PAROXETINE
     Route: 065
  283. PAROXETINE [Interacting]
     Active Substance: PAROXETINE
     Route: 065
  284. PAROXETINE [Interacting]
     Active Substance: PAROXETINE
     Route: 065
  285. PAROXETINE [Interacting]
     Active Substance: PAROXETINE
     Route: 048
     Dates: start: 1996, end: 201105
  286. PAROXETINE [Interacting]
     Active Substance: PAROXETINE
     Route: 048
  287. PAROXETINE [Interacting]
     Active Substance: PAROXETINE
     Route: 065
  288. PAROXETINE [Interacting]
     Active Substance: PAROXETINE
     Route: 048
  289. PAROXETINE [Interacting]
     Active Substance: PAROXETINE
     Route: 065
  290. PAROXETINE [Interacting]
     Active Substance: PAROXETINE
     Route: 048
  291. PAROXETINE [Interacting]
     Active Substance: PAROXETINE
     Route: 048
  292. PAROXETINE [Interacting]
     Active Substance: PAROXETINE
     Route: 065
     Dates: start: 20081201, end: 20101210
  293. PAROXETINE [Interacting]
     Active Substance: PAROXETINE
     Route: 065
     Dates: start: 201012
  294. PAROXETINE [Interacting]
     Active Substance: PAROXETINE
     Route: 048
     Dates: start: 19990801, end: 201105
  295. PAROXETINE [Interacting]
     Active Substance: PAROXETINE
     Route: 048
     Dates: start: 201105, end: 20110706
  296. PAROXETINE [Interacting]
     Active Substance: PAROXETINE
     Route: 065
     Dates: start: 1997, end: 201105
  297. PAROXETINE [Interacting]
     Active Substance: PAROXETINE
     Route: 065
     Dates: start: 199908, end: 201105
  298. PAROXETINE [Interacting]
     Active Substance: PAROXETINE
     Route: 065
  299. PAROXETINE [Interacting]
     Active Substance: PAROXETINE
     Route: 048
     Dates: start: 1997
  300. PHOSPHORUS [Interacting]
     Active Substance: PHOSPHORUS
     Indication: Product used for unknown indication
     Route: 065
  301. PHOSPHORUS [Interacting]
     Active Substance: PHOSPHORUS
     Route: 065

REACTIONS (142)
  - Cyanosis [Fatal]
  - Neuroleptic malignant syndrome [Unknown]
  - Nightmare [Unknown]
  - Swollen tongue [Unknown]
  - Aphasia [Not Recovered/Not Resolved]
  - Suicidal ideation [Not Recovered/Not Resolved]
  - Dystonia [Unknown]
  - Feeling of body temperature change [Unknown]
  - Skin discolouration [Not Recovered/Not Resolved]
  - Premature labour [Unknown]
  - Paraesthesia [Unknown]
  - Contusion [Not Recovered/Not Resolved]
  - Paralysis [Unknown]
  - Hypoaesthesia oral [Unknown]
  - Pallor [Unknown]
  - Muscle disorder [Unknown]
  - Muscle spasms [Not Recovered/Not Resolved]
  - Arthralgia [Unknown]
  - Serotonin syndrome [Not Recovered/Not Resolved]
  - Musculoskeletal stiffness [Not Recovered/Not Resolved]
  - Heart rate increased [Unknown]
  - Pyrexia [Unknown]
  - Balance disorder [Unknown]
  - Gait disturbance [Unknown]
  - Hyperhidrosis [Unknown]
  - Cyanosis [Unknown]
  - Eye pain [Unknown]
  - Delirium [Unknown]
  - Depression [Unknown]
  - Mood swings [Unknown]
  - Dissociation [Not Recovered/Not Resolved]
  - Feeling of despair [Unknown]
  - Emotional disorder [Unknown]
  - Derealisation [Not Recovered/Not Resolved]
  - Dyspnoea [Unknown]
  - Swelling face [Unknown]
  - Incontinence [Not Recovered/Not Resolved]
  - Sensory loss [Unknown]
  - Mania [Unknown]
  - Hypoaesthesia [Not Recovered/Not Resolved]
  - H1N1 influenza [Unknown]
  - Asthenia [Unknown]
  - Tinnitus [Unknown]
  - Hyperhidrosis [Not Recovered/Not Resolved]
  - Decreased appetite [Unknown]
  - Blood sodium decreased [Unknown]
  - Drooling [Unknown]
  - Gastric pH decreased [Unknown]
  - Restless legs syndrome [Not Recovered/Not Resolved]
  - Feeling jittery [Unknown]
  - Parosmia [Unknown]
  - Menstrual disorder [Unknown]
  - Fatigue [Unknown]
  - Speech disorder [Unknown]
  - Pruritus [Unknown]
  - Headache [Not Recovered/Not Resolved]
  - Diarrhoea [Unknown]
  - Dissociation [Not Recovered/Not Resolved]
  - Contusion [Not Recovered/Not Resolved]
  - Depersonalisation/derealisation disorder [Not Recovered/Not Resolved]
  - Sleep disorder [Not Recovered/Not Resolved]
  - Restlessness [Unknown]
  - Drug interaction [Unknown]
  - Mydriasis [Unknown]
  - Urinary retention [Unknown]
  - Anxiety [Unknown]
  - Agitation [Unknown]
  - Disturbance in attention [Unknown]
  - Tachycardia [Unknown]
  - Contusion [Not Recovered/Not Resolved]
  - Seizure [Unknown]
  - Confusional state [Not Recovered/Not Resolved]
  - Dizziness [Unknown]
  - Visual impairment [Unknown]
  - Suicidal ideation [Not Recovered/Not Resolved]
  - Cogwheel rigidity [Unknown]
  - Muscle rigidity [Unknown]
  - Dizziness [Unknown]
  - Tremor [Not Recovered/Not Resolved]
  - Disorientation [Not Recovered/Not Resolved]
  - Vision blurred [Unknown]
  - Dyskinesia [Unknown]
  - Hallucinations, mixed [Unknown]
  - Drug withdrawal syndrome [Unknown]
  - Psychotic disorder [Recovered/Resolved]
  - Schizophrenia [Unknown]
  - Vomiting [Unknown]
  - Illness [Unknown]
  - Somnolence [Not Recovered/Not Resolved]
  - Maternal exposure during pregnancy [Unknown]
  - Therapeutic product ineffective [Unknown]
  - Drug ineffective [Unknown]
  - Toxicity to various agents [Unknown]
  - Musculoskeletal stiffness [Unknown]
  - Eye pain [Not Recovered/Not Resolved]
  - Limb injury [Unknown]
  - Serotonin syndrome [Not Recovered/Not Resolved]
  - Contusion [Unknown]
  - Hypoaesthesia [Not Recovered/Not Resolved]
  - Psychotic disorder [Recovered/Resolved]
  - Hallucination [Unknown]
  - Paraesthesia [Unknown]
  - Cyanosis [Not Recovered/Not Resolved]
  - Headache [Unknown]
  - Diarrhoea [Unknown]
  - Swollen tongue [Unknown]
  - Nightmare [Unknown]
  - Eye pain [Unknown]
  - Sleep disorder [Unknown]
  - Restlessness [Unknown]
  - Contusion [Not Recovered/Not Resolved]
  - Feeling of body temperature change [Unknown]
  - Paralysis [Not Recovered/Not Resolved]
  - Paraesthesia [Not Recovered/Not Resolved]
  - Schizophrenia [Not Recovered/Not Resolved]
  - Premature labour [Not Recovered/Not Resolved]
  - Contusion [Unknown]
  - Contusion [Unknown]
  - Dystonia [Unknown]
  - Speech disorder [Unknown]
  - Muscle disorder [Unknown]
  - Pallor [Unknown]
  - Swollen tongue [Unknown]
  - Aphasia [Not Recovered/Not Resolved]
  - Premature labour [Unknown]
  - Paralysis [Unknown]
  - Illness [Unknown]
  - Musculoskeletal stiffness [Unknown]
  - Muscle spasms [Unknown]
  - Muscle rigidity [Unknown]
  - Somnolence [Unknown]
  - Seizure [Unknown]
  - Fatigue [Unknown]
  - Nightmare [Unknown]
  - Drug withdrawal syndrome [Unknown]
  - Toxicity to various agents [Unknown]
  - Therapeutic product ineffective [Unknown]
  - Drug interaction [Unknown]
  - Exposure during pregnancy [Not Recovered/Not Resolved]
  - Exposure during pregnancy [Unknown]
  - Off label use [Unknown]
  - Off label use [Unknown]

NARRATIVE: CASE EVENT DATE: 20030101
